FAERS Safety Report 5906610-4 (Version None)
Quarter: 2008Q4

REPORT INFORMATION
  Report Type: 
  Country: None (occurrence: None)
  Receive Date: 20081002
  Receipt Date: 20080922
  Transmission Date: 20090506
  Serious: Yes (Hospitalization)
  Sender: FDA-Public Use
  Company Number: US-ELI_LILLY_AND_COMPANY-US200806004448

PATIENT
  Sex: Male
  Weight: 121.9 kg

DRUGS (12)
  1. BYETTA [Suspect]
     Indication: TYPE 2 DIABETES MELLITUS
     Dosage: 5 UG, 2/D
     Route: 058
     Dates: start: 20071201, end: 20080401
  2. BYETTA [Suspect]
     Dosage: 10 UG, 2/D
     Route: 058
     Dates: start: 20080401
  3. METFORMIN HCL [Concomitant]
     Indication: TYPE 2 DIABETES MELLITUS
     Dosage: 1000 MG, 2/D
     Dates: start: 20071201
  4. GLYBURIDE [Concomitant]
     Indication: TYPE 2 DIABETES MELLITUS
     Dates: start: 20080401
  5. BUPROPION HCL [Concomitant]
     Indication: DEPRESSION
     Dosage: 200 MG, 2/D
  6. TEGRETOL [Concomitant]
     Indication: CONVULSION
     Dosage: 400 MG, EACH EVENING
  7. ASPIRIN [Concomitant]
     Indication: ANTICOAGULANT THERAPY
     Dosage: 81 MG, DAILY (1/D)
  8. LIPITOR [Concomitant]
     Indication: BLOOD CHOLESTEROL
     Dosage: 20 MG, EACH MORNING
  9. ZOLOFT [Concomitant]
     Indication: BIPOLAR DISORDER
     Dosage: 100 MG, UNK
  10. LISINOPRIL [Concomitant]
     Indication: BLOOD PRESSURE
     Dosage: 20 MG, EACH MORNING
  11. SEROQUEL [Concomitant]
     Indication: HALLUCINATION
     Dosage: 50 MG, EACH EVENING
  12. PROTONIX [Concomitant]
     Indication: GASTROOESOPHAGEAL REFLUX DISEASE
     Dosage: 40 MG, EACH MORNING

REACTIONS (8)
  - APPENDICITIS PERFORATED [None]
  - BLOOD GLUCOSE INCREASED [None]
  - CHOLECYSTITIS CHRONIC [None]
  - CONSTIPATION [None]
  - DIARRHOEA [None]
  - INCISION SITE HAEMORRHAGE [None]
  - KELOID SCAR [None]
  - WEIGHT DECREASED [None]
